FAERS Safety Report 16187257 (Version 2)
Quarter: 2019Q2

REPORT INFORMATION
  Report Type: Report from Study
  Country: None (occurrence: US)
  Receive Date: 20190411
  Receipt Date: 20190613
  Transmission Date: 20190711
  Serious: Yes (Hospitalization, Other)
  Sender: FDA-Public Use
  Company Number: US-ABBVIE-19S-163-2735227-00

PATIENT
  Sex: Female

DRUGS (2)
  1. CREON [Suspect]
     Active Substance: PANCRELIPASE AMYLASE\PANCRELIPASE LIPASE\PANCRELIPASE PROTEASE
     Indication: PRODUCT USED FOR UNKNOWN INDICATION
     Route: 048
  2. ELIQUIS [Suspect]
     Active Substance: APIXABAN
     Indication: PRODUCT USED FOR UNKNOWN INDICATION
     Route: 065

REACTIONS (8)
  - Oropharyngeal plaque [Unknown]
  - Cardiac murmur [Unknown]
  - Diarrhoea [Not Recovered/Not Resolved]
  - Haematochezia [Unknown]
  - Pancreaticoduodenectomy [Unknown]
  - Gastrointestinal haemorrhage [Unknown]
  - Renal transplant [Unknown]
  - Vascular graft [Unknown]

NARRATIVE: CASE EVENT DATE: 2017
